FAERS Safety Report 13439478 (Version 2)
Quarter: 2017Q2

REPORT INFORMATION
  Report Type: Spontaneous
  Country: NL (occurrence: NL)
  Receive Date: 20170413
  Receipt Date: 20170419
  Transmission Date: 20170830
  Serious: Yes (Other)
  Sender: FDA-Public Use
  Company Number: NL-CELLTRION INC.-2017NL004615

PATIENT

DRUGS (8)
  1. LEFLUNOMIDE. [Concomitant]
     Active Substance: LEFLUNOMIDE
  2. PREDNISONE. [Concomitant]
     Active Substance: PREDNISONE
  3. FAMOTIDINE. [Concomitant]
     Active Substance: FAMOTIDINE
  4. NAPROXEN. [Concomitant]
     Active Substance: NAPROXEN
  5. DIAZEPAM. [Concomitant]
     Active Substance: DIAZEPAM
  6. METOPROLOL. [Concomitant]
     Active Substance: METOPROLOL
  7. FLUOXETINE [Concomitant]
     Active Substance: FLUOXETINE HYDROCHLORIDE
  8. INFLIXIMAB HOSPIRA [Suspect]
     Active Substance: INFLIXIMAB
     Indication: RHEUMATOID ARTHRITIS
     Dosage: 3 MG/KG, (3 DOSES)
     Route: 065

REACTIONS (1)
  - Toxic optic neuropathy [Not Recovered/Not Resolved]
